FAERS Safety Report 12644914 (Version 26)
Quarter: 2020Q2

REPORT INFORMATION
  Report Type: Spontaneous
  Country: US (occurrence: US)
  Receive Date: 20160811
  Receipt Date: 20200624
  Transmission Date: 20200713
  Serious: Yes (Other)
  Sender: FDA-Public Use
  Company Number: US-PFIZER INC-2016374437

PATIENT
  Age: 56 Year
  Sex: Male
  Weight: 82.54 kg

DRUGS (35)
  1. VIAGRA [Suspect]
     Active Substance: SILDENAFIL CITRATE
     Indication: DYSPNOEA
     Dosage: 100 MG, ONCE DAILY
     Route: 048
  2. ALPRAZOLAM. [Concomitant]
     Active Substance: ALPRAZOLAM
     Indication: FEELING OF RELAXATION
  3. SERTRALINE [Concomitant]
     Active Substance: SERTRALINE HYDROCHLORIDE
     Indication: DEPRESSION
     Dosage: 50 MG, 1X/DAY (50MG 1 TABLET BY MOUTH DAILY AT BEDTIME)
     Route: 048
  4. PROAIR HFA [Concomitant]
     Active Substance: ALBUTEROL SULFATE
     Indication: CHRONIC OBSTRUCTIVE PULMONARY DISEASE
     Dosage: UNK
     Dates: start: 2007
  5. VIAGRA [Suspect]
     Active Substance: SILDENAFIL CITRATE
     Indication: OXYGEN SATURATION DECREASED
     Dosage: 100 MG, TWO OR THREE TIMES A WEEK
     Route: 048
     Dates: start: 2007, end: 2012
  6. VIAGRA [Suspect]
     Active Substance: SILDENAFIL CITRATE
     Dosage: UNK
     Route: 048
     Dates: start: 20191003
  7. ALPRAZOLAM. [Concomitant]
     Active Substance: ALPRAZOLAM
     Indication: DEPRESSION
  8. SPIRIVA [Concomitant]
     Active Substance: TIOTROPIUM BROMIDE MONOHYDRATE
     Indication: CHRONIC OBSTRUCTIVE PULMONARY DISEASE
     Dosage: 18 UG, ONCE DAILY (EVERY NIGHT)
     Route: 055
     Dates: start: 20150911
  9. OXYGEN. [Concomitant]
     Active Substance: OXYGEN
     Indication: CHRONIC OBSTRUCTIVE PULMONARY DISEASE
     Dosage: UNK (3.25L WHEN SLEEPING 4.75L WHEN EXERCISING 3.75L ON NON EXERCISING DAYS)
     Route: 045
  10. VIAGRA [Suspect]
     Active Substance: SILDENAFIL CITRATE
     Dosage: 100 MG, ONCE DAILY
     Route: 048
     Dates: start: 2010
  11. VIAGRA [Suspect]
     Active Substance: SILDENAFIL CITRATE
     Dosage: 100 MG, TWICE WEEKLY
     Route: 048
     Dates: start: 20150203
  12. SPIRIVA [Concomitant]
     Active Substance: TIOTROPIUM BROMIDE MONOHYDRATE
     Dosage: 2.5 UG, DAILY (2.5MCG 1 SPRAY TO MOUTH DAILY)
     Route: 048
  13. PROAIR HFA [Concomitant]
     Active Substance: ALBUTEROL SULFATE
     Dosage: 1 PUFF, EVERY 4 TO 6 HOURS
     Dates: start: 20150911
  14. MONTELUKAST [Concomitant]
     Active Substance: MONTELUKAST SODIUM
     Indication: CHRONIC OBSTRUCTIVE PULMONARY DISEASE
     Dosage: 10 MG, ONCE DAILY (EVERY MORNING)
     Route: 048
  15. ALPRAZOLAM. [Concomitant]
     Active Substance: ALPRAZOLAM
     Indication: ANXIETY
     Dosage: 1 MG, ONCE DAILY (AT NIGHT)
  16. SERTRALINE [Concomitant]
     Active Substance: SERTRALINE HYDROCHLORIDE
     Indication: ANXIETY
     Dosage: 100 MG, ONCE DAILY (BEFORE BEDTIME)
  17. SERTRALINE [Concomitant]
     Active Substance: SERTRALINE HYDROCHLORIDE
     Indication: STRESS
     Dosage: 100 MG, ONCE DAILY (EVERY MORNING)
     Route: 048
  18. SPIRIVA [Concomitant]
     Active Substance: TIOTROPIUM BROMIDE MONOHYDRATE
     Dosage: 2 PUFFS, DAILY
  19. VENTOLIN HFA [Concomitant]
     Active Substance: ALBUTEROL SULFATE
     Indication: CHRONIC OBSTRUCTIVE PULMONARY DISEASE
     Dosage: 90 UG, AS NEEDED (90MCG/ACTIVATION 1-4 PUFFS AS NEEDED)
  20. ALPRAZOLAM. [Concomitant]
     Active Substance: ALPRAZOLAM
     Indication: STRESS
     Dosage: 2 MG, ONCE DAILY (AT BEDTIME NIGHTLY)
     Route: 048
  21. SERTRALINE [Concomitant]
     Active Substance: SERTRALINE HYDROCHLORIDE
     Indication: FEELING OF RELAXATION
  22. ADVIL [Concomitant]
     Active Substance: IBUPROFEN
     Indication: HEADACHE
     Dosage: UNK
  23. CYCLOBENZAPRINE. [Concomitant]
     Active Substance: CYCLOBENZAPRINE
     Indication: MUSCLE RELAXANT THERAPY
     Dosage: 5 MG, ONCE DAILY (BEFORE BED)
     Dates: end: 20170601
  24. ADVAIR HFA [Concomitant]
     Active Substance: FLUTICASONE PROPIONATE\SALMETEROL XINAFOATE
     Dosage: UNK
     Dates: start: 2007
  25. ALPRAZOLAM. [Concomitant]
     Active Substance: ALPRAZOLAM
     Indication: CHRONIC OBSTRUCTIVE PULMONARY DISEASE
  26. ALPRAZOLAM. [Concomitant]
     Active Substance: ALPRAZOLAM
     Indication: SLEEP DISORDER
  27. OXYGEN. [Concomitant]
     Active Substance: OXYGEN
     Dosage: UNK INCREASES 4 + 3/4 LITERS OF OXYGEN
  28. VIAGRA [Suspect]
     Active Substance: SILDENAFIL CITRATE
     Indication: CHRONIC OBSTRUCTIVE PULMONARY DISEASE
     Dosage: UNK
     Route: 048
  29. VIAGRA [Suspect]
     Active Substance: SILDENAFIL CITRATE
     Dosage: 100 MG, TWICE WEEKLY
     Route: 048
  30. BREO ELLIPTA [Concomitant]
     Active Substance: FLUTICASONE FUROATE\VILANTEROL TRIFENATATE
     Indication: CHRONIC OBSTRUCTIVE PULMONARY DISEASE
     Dosage: UNK, ONCE DAILY
     Route: 055
  31. VIAGRA [Suspect]
     Active Substance: SILDENAFIL CITRATE
     Indication: PULMONARY ARTERIAL HYPERTENSION
     Dosage: UNK, TWICE WEEKLY
     Route: 048
  32. VIAGRA [Suspect]
     Active Substance: SILDENAFIL CITRATE
     Dosage: 50 MG, ONCE DAILY
     Route: 048
  33. VIAGRA [Suspect]
     Active Substance: SILDENAFIL CITRATE
     Dosage: 100 MG, AS NEEDED (100MG 1 TABLET BY MOUTH 3 TIMES A WEEK AS NEEDED FOR EXERCISE)
     Route: 048
  34. ZOLPIDEM [Concomitant]
     Active Substance: ZOLPIDEM TARTRATE
     Indication: INSOMNIA
     Dosage: 10 MG, ONCE DAILY (EVERY NIGHT AT BEDTIME)
     Route: 048
  35. CYCLOBENZAPRINE. [Concomitant]
     Active Substance: CYCLOBENZAPRINE
     Indication: BRUXISM

REACTIONS (13)
  - Off label use [Unknown]
  - Product use in unapproved indication [Unknown]
  - Intentional product use issue [Unknown]
  - Fluid retention [Recovered/Resolved]
  - Therapeutic response unexpected [Unknown]
  - Dyspnoea [Not Recovered/Not Resolved]
  - Withdrawal syndrome [Unknown]
  - Weight fluctuation [Unknown]
  - General physical health deterioration [Not Recovered/Not Resolved]
  - Suicidal ideation [Unknown]
  - Asthenia [Not Recovered/Not Resolved]
  - Drug effective for unapproved indication [Unknown]
  - Peripheral swelling [Recovered/Resolved]

NARRATIVE: CASE EVENT DATE: 2007
